FAERS Safety Report 8219433-0 (Version None)
Quarter: 2012Q1

REPORT INFORMATION
  Report Type: 
  Country: None (occurrence: None)
  Receive Date: 20120319
  Receipt Date: 20120316
  Transmission Date: 20120608
  Serious: Yes (Hospitalization)
  Sender: FDA-Public Use
  Company Number: US-PFIZER INC-2011092187

PATIENT
  Sex: Female
  Weight: 56.689 kg

DRUGS (11)
  1. CRIZOTINIB [Suspect]
     Indication: NON-SMALL CELL LUNG CANCER
     Dosage: 250 MG, 2X/DAY
     Route: 048
     Dates: start: 20110314, end: 20110417
  2. LORAZEPAM [Concomitant]
     Dosage: 0.5 MG, Q8H PRN
     Route: 048
  3. SERTRALINE HYDROCHLORIDE [Concomitant]
     Dosage: 50 MG, 1X/DAY
     Route: 048
  4. PANTOPRAZOLE [Concomitant]
     Dosage: 10 MG, 1X/DAY
     Route: 048
  5. NYSTATIN [Concomitant]
     Dosage: 5/100,000ML UNIT/ML, 4 TIMES/DAY
     Route: 048
  6. PANTOPRAZOLE [Concomitant]
     Dosage: 20 MG, 1X/DAY
     Route: 048
  7. FAMOTIDINE [Concomitant]
     Dosage: 40 MG, PRN QD
     Route: 048
  8. ARIXTRA [Concomitant]
     Dosage: 7.5 MG, 1X/DAY
     Route: 058
  9. ONDANSETRON [Concomitant]
     Dosage: 4 MG, Q8H,PRN
     Route: 048
  10. WARFARIN SODIUM [Concomitant]
     Dosage: 3 MG, 1X/DAY
     Route: 048
  11. ADVAIR DISKUS 100/50 [Concomitant]
     Indication: ASTHMA
     Dosage: 250/50 MCG 2XDAY
     Route: 055

REACTIONS (1)
  - DEHYDRATION [None]
